FAERS Safety Report 9766049 (Version 1)
Quarter: 2013Q4

REPORT INFORMATION
  Report Type: Spontaneous
  Country: US (occurrence: US)
  Receive Date: 20131217
  Receipt Date: 20131217
  Transmission Date: 20140711
  Serious: No
  Sender: FDA-Public Use
  Company Number: US-GLAXOSMITHKLINE-A1016556A

PATIENT
  Sex: Female

DRUGS (5)
  1. VOTRIENT [Suspect]
     Indication: SOFT TISSUE CANCER
     Dosage: 600MG PER DAY
     Route: 048
     Dates: start: 20130110
  2. EXALGO [Concomitant]
  3. HYDROMORPHONE [Concomitant]
  4. AMLODIPINE [Concomitant]
  5. LYRICA [Concomitant]

REACTIONS (1)
  - Diarrhoea [Unknown]
